FAERS Safety Report 7042234-6 (Version None)
Quarter: 2010Q4

REPORT INFORMATION
  Report Type: 
  Country: None (occurrence: None)
  Receive Date: 20101013
  Receipt Date: 20101006
  Transmission Date: 20110411
  Serious: Yes (Hospitalization)
  Sender: FDA-Public Use
  Company Number: US-WYE-H18009910

PATIENT
  Sex: Male
  Weight: 76.27 kg

DRUGS (5)
  1. TYGACIL [Suspect]
     Indication: COLITIS
     Route: 042
     Dates: start: 20100901, end: 20100920
  2. PHENOBARBITAL [Concomitant]
     Dosage: UNKNOWN
     Route: 042
  3. DILANTIN [Concomitant]
     Dosage: UNKNOWN
     Route: 042
  4. LASIX [Concomitant]
     Dosage: UNKNOWN
     Route: 065
  5. VANCOMYCIN [Concomitant]
     Dosage: UNKNOWN
     Route: 048

REACTIONS (3)
  - ALANINE AMINOTRANSFERASE INCREASED [None]
  - BLOOD BILIRUBIN INCREASED [None]
  - CHOLELITHIASIS [None]
